FAERS Safety Report 6957679-X (Version None)
Quarter: 2010Q3

REPORT INFORMATION
  Report Type: 
  Country: None (occurrence: None)
  Receive Date: 20100831
  Receipt Date: 20100817
  Transmission Date: 20110219
  Serious: Yes (Hospitalization, Other)
  Sender: FDA-Public Use
  Company Number: PHHY2010CA10043

PATIENT
  Sex: Male

DRUGS (1)
  1. SANDOSTATIN LAR [Suspect]
     Indication: ACROMEGALY
     Dosage: 20 MG EVERY FOUR WEEKS
     Route: 030
     Dates: start: 20100218

REACTIONS (11)
  - ALOPECIA [None]
  - ASTHENIA [None]
  - BLOOD PRESSURE SYSTOLIC INCREASED [None]
  - CARDIAC PACEMAKER INSERTION [None]
  - DIARRHOEA [None]
  - DIVERTICULITIS [None]
  - GASTROINTESTINAL SURGERY [None]
  - LACTOSE INTOLERANCE [None]
  - SINUS DISORDER [None]
  - SUBILEUS [None]
  - WEIGHT DECREASED [None]
